FAERS Safety Report 15684544 (Version 1)
Quarter: 2018Q4

REPORT INFORMATION
  Report Type: Spontaneous
  Country: US (occurrence: US)
  Receive Date: 20181121
  Receipt Date: 20181121
  Transmission Date: 20190205
  Serious: No
  Sender: FDA-Public Use
  Company Number: None

PATIENT

DRUGS (1)
  1. OCTREOTIDE PFS 100MCG/ML [Suspect]
     Active Substance: OCTREOTIDE ACETATE
     Dates: start: 20181120

REACTIONS (1)
  - Off label use [None]

NARRATIVE: CASE EVENT DATE: 20181120
